FAERS Safety Report 15813670 (Version 1)
Quarter: 2019Q1

REPORT INFORMATION
  Report Type: Spontaneous
  Country: US (occurrence: US)
  Receive Date: 20190111
  Receipt Date: 20190111
  Transmission Date: 20190417
  Serious: Yes (Death)
  Sender: FDA-Public Use
  Company Number: US-INSYS THERAPEUTICS, INC-INS201901-000006

PATIENT
  Age: 36 Year
  Sex: Male

DRUGS (9)
  1. DIPHENHYDRAMINE. [Suspect]
     Active Substance: DIPHENHYDRAMINE
  2. 6-MONO-ACETYLMORPHINE [Suspect]
     Active Substance: 6-ACETYLMORPHINE
  3. ACETYLFENTANYL [Suspect]
     Active Substance: ACETYLFENTANYL
  4. FENTANYL. [Suspect]
     Active Substance: FENTANYL
     Indication: PRODUCT USED FOR UNKNOWN INDICATION
  5. CYCLOPROPYLFENTANYL [Suspect]
     Active Substance: CYCLOPROPYLFENTANYL
  6. COCAINE [Suspect]
     Active Substance: COCAINE
  7. MORPHINE [Suspect]
     Active Substance: MORPHINE
  8. PARA-FLUORO-ISOBUTYRYLFENTANYL [Suspect]
     Active Substance: 4-FLUOROISOBUTYRFENTANYL
  9. BENZOYLECGONINE [Suspect]
     Active Substance: BENZOYLECGONINE

REACTIONS (1)
  - Accidental overdose [Fatal]

NARRATIVE: CASE EVENT DATE: 2017
